FAERS Safety Report 8807234 (Version 2)
Quarter: 2013Q4

REPORT INFORMATION
  Report Type: Spontaneous
  Country: US (occurrence: US)
  Receive Date: 20120925
  Receipt Date: 20131010
  Transmission Date: 20140711
  Serious: Yes (Hospitalization)
  Sender: FDA-Public Use
  Company Number: US-ASTRAZENECA-2012SE73061

PATIENT
  Age: 48 Year
  Sex: Female
  Weight: 95.3 kg

DRUGS (5)
  1. SEROQUEL [Suspect]
     Indication: BIPOLAR I DISORDER
     Route: 048
  2. TENORMIN [Suspect]
     Route: 048
  3. TEGRETOL [Concomitant]
  4. KLONOPIN [Concomitant]
  5. METFORMIN [Concomitant]
     Indication: DIABETES MELLITUS

REACTIONS (6)
  - Withdrawal syndrome [Recovered/Resolved]
  - Hyperhidrosis [Recovered/Resolved]
  - Chills [Recovered/Resolved]
  - Mental disorder [Unknown]
  - Malaise [Recovered/Resolved]
  - Drug dose omission [Recovered/Resolved]
